FAERS Safety Report 4705446-X (Version None)
Quarter: 2005Q2

REPORT INFORMATION
  Report Type: 
  Country: None (occurrence: None)
  Receive Date: 20050629
  Receipt Date: 20040712
  Transmission Date: 20051028
  Serious: Yes (Death)
  Sender: FDA-Public Use
  Company Number: 200414046GDDC

PATIENT
  Age: 77 Year
  Sex: Male
  Weight: 73 kg

DRUGS (7)
  1. HEPARIN [Suspect]
     Indication: MYOCARDIAL INFARCTION
  2. HEPARIN [Suspect]
     Indication: MYOCARDIAL INFARCTION
     Dosage: ONCE IV
     Route: 042
     Dates: start: 20040410, end: 20040410
  3. HEPARIN [Suspect]
     Indication: MYOCARDIAL INFARCTION
     Dosage: ONCE SC
     Route: 058
     Dates: start: 20040410, end: 20040410
  4. HEPARIN SODIUM [Suspect]
     Indication: MYOCARDIAL INFARCTION
     Dosage: CONT IVF
     Route: 042
     Dates: start: 20040410, end: 20040410
  5. ASPIRIN [Suspect]
     Indication: MYOCARDIAL INFARCTION
     Dosage: 325 MG QD PO
     Route: 048
     Dates: start: 20040410, end: 20040410
  6. ACTIVASE [Suspect]
     Indication: MYOCARDIAL INFARCTION
     Dosage: 100 MG IV
     Route: 042
     Dates: start: 20040410, end: 20040410
  7. NITROGLYCERIN [Concomitant]

REACTIONS (6)
  - CARDIAC TAMPONADE [None]
  - ELECTROMECHANICAL DISSOCIATION [None]
  - HAEMODYNAMIC INSTABILITY [None]
  - MYOCARDIAL RUPTURE [None]
  - PERICARDIAL EFFUSION [None]
  - RESPIRATORY FAILURE [None]
